FAERS Safety Report 15708586 (Version 1)
Quarter: 2018Q4

REPORT INFORMATION
  Report Type: Spontaneous
  Country: CA (occurrence: CA)
  Receive Date: 20181211
  Receipt Date: 20181211
  Transmission Date: 20190205
  Serious: Yes (Death)
  Sender: FDA-Public Use
  Company Number: CA-TEVA-2018-CA-986600

PATIENT
  Age: 74 Year
  Sex: Female
  Weight: 43 kg

DRUGS (16)
  1. ROSUVASTATIN CALCIUM. [Concomitant]
     Active Substance: ROSUVASTATIN CALCIUM
  2. TRACLEER [Concomitant]
     Active Substance: BOSENTAN
  3. GLYCERINE [Concomitant]
     Active Substance: GLYCERIN
  4. RAMIPRIL. [Concomitant]
     Active Substance: RAMIPRIL
  5. CALCIUM DPANTOTHENATE/NICOTINAMIDE/PYRIDOXINE HYDROCHLORIDE/RIBOFLAVIN [Concomitant]
  6. CALCIUM/VITAMIN D3 [Concomitant]
  7. FUROSEMIDE. [Concomitant]
     Active Substance: FUROSEMIDE
  8. SYMBICORT [Concomitant]
     Active Substance: BUDESONIDE\FORMOTEROL FUMARATE DIHYDRATE
  9. BISOPROLOL [Concomitant]
     Active Substance: BISOPROLOL
  10. FORTEO [Concomitant]
     Active Substance: TERIPARATIDE
  11. ACETAMINOPHEN. [Concomitant]
     Active Substance: ACETAMINOPHEN
  12. ASA [Concomitant]
     Active Substance: ASPIRIN
  13. ATIVAN [Concomitant]
     Active Substance: LORAZEPAM
  14. SILDENAFIL CITRATE. [Suspect]
     Active Substance: SILDENAFIL CITRATE
     Indication: PULMONARY ARTERIAL HYPERTENSION
     Route: 048
  15. DEXILANT [Concomitant]
     Active Substance: DEXLANSOPRAZOLE
  16. DOCUSATE SODIUM. [Concomitant]
     Active Substance: DOCUSATE SODIUM

REACTIONS (1)
  - Death [Fatal]
